FAERS Safety Report 25487884 (Version 1)
Quarter: 2025Q2

REPORT INFORMATION
  Report Type: Spontaneous
  Country: CN (occurrence: CN)
  Receive Date: 20250627
  Receipt Date: 20250627
  Transmission Date: 20250716
  Serious: Yes (Other)
  Sender: FRESENIUS KABI
  Company Number: CN-FreseniusKabi-FK202508745

PATIENT
  Age: 93 Year
  Sex: Male
  Weight: 70.0 kg

DRUGS (1)
  1. PROPOFOL [Suspect]
     Active Substance: PROPOFOL
     Indication: Sedation
     Dosage: FORM OF ADMIN: INJECTION ?ROUTE OF ADMIN: PUMP INJECTION
     Dates: start: 20250611, end: 20250615

REACTIONS (1)
  - Hepatic enzyme increased [Unknown]

NARRATIVE: CASE EVENT DATE: 20250615
